FAERS Safety Report 13513324 (Version 3)
Quarter: 2017Q4

REPORT INFORMATION
  Report Type: Spontaneous
  Country: GB (occurrence: GB)
  Receive Date: 20170504
  Receipt Date: 20171027
  Transmission Date: 20180320
  Serious: Yes (Hospitalization, Other)
  Sender: FDA-Public Use
  Company Number: GB-BIOGEN-2017BI00395567

PATIENT
  Sex: Female

DRUGS (2)
  1. PLEGRIDY [Suspect]
     Active Substance: PEGINTERFERON BETA-1A
     Route: 058
     Dates: start: 20170107
  2. PLEGRIDY [Suspect]
     Active Substance: PEGINTERFERON BETA-1A
     Indication: MULTIPLE SCLEROSIS
     Route: 058
     Dates: start: 20160107

REACTIONS (10)
  - Sepsis [Recovered/Resolved]
  - Diarrhoea [Unknown]
  - Infected neoplasm [Unknown]
  - Multiple sclerosis relapse [Unknown]
  - Heart rate increased [Unknown]
  - Neoplasm skin [Unknown]
  - Syncope [Unknown]
  - Myocardial infarction [Unknown]
  - Rash macular [Unknown]
  - Malaise [Unknown]
